FAERS Safety Report 16068231 (Version 1)
Quarter: 2019Q1

REPORT INFORMATION
  Report Type: Spontaneous
  Country: CN (occurrence: CN)
  Receive Date: 20190313
  Receipt Date: 20190313
  Transmission Date: 20190418
  Serious: Yes (Other)
  Sender: FDA-Public Use
  Company Number: CN-INCYTE CORPORATION-2019IN002184

PATIENT

DRUGS (2)
  1. JAKAVI [Suspect]
     Active Substance: RUXOLITINIB
     Indication: ACUTE GRAFT VERSUS HOST DISEASE
     Dosage: 10 MG, BID (5-10 MG BID FOR 2 MONTHS, AND THEN TAPERED GRADUALLY FOR ANOTHER ONE MONTH)
     Route: 065
  2. ETANERCEPT [Suspect]
     Active Substance: ETANERCEPT
     Indication: ACUTE GRAFT VERSUS HOST DISEASE
     Dosage: 25 MG, BIW (2-8 WEEKS)
     Route: 065

REACTIONS (2)
  - Product use in unapproved indication [Unknown]
  - Meningoencephalitis herpetic [Unknown]
